FAERS Safety Report 25992002 (Version 2)
Quarter: 2025Q4

REPORT INFORMATION
  Report Type: Spontaneous
  Country: US (occurrence: US)
  Receive Date: 20251103
  Receipt Date: 20251120
  Transmission Date: 20260118
  Serious: No
  Sender: SANOFI AVENTIS
  Company Number: US-SA-2025SA319930

PATIENT
  Age: 49 Year
  Sex: Female

DRUGS (11)
  1. DUPIXENT [Suspect]
     Active Substance: DUPILUMAB
     Indication: Dermatitis
     Dosage: 300 MG, QOW
     Route: 058
     Dates: start: 20251028
  2. ALBUTEROL SULFATE [Concomitant]
     Active Substance: ALBUTEROL SULFATE
  3. AZELASTINE [Concomitant]
     Active Substance: AZELASTINE
  4. BENZONATATE [Concomitant]
     Active Substance: BENZONATATE
  5. EPINEPHRINE [Concomitant]
     Active Substance: EPINEPHRINE
  6. FASENRA [Concomitant]
     Active Substance: BENRALIZUMAB
  7. FLUCONAZOLE [Concomitant]
     Active Substance: FLUCONAZOLE
  8. FLUTICASONE [Concomitant]
     Active Substance: FLUTICASONE
  9. HUMIRA [Concomitant]
     Active Substance: ADALIMUMAB
  10. IBUPROFEN [Concomitant]
     Active Substance: IBUPROFEN
  11. HUMIRA [Concomitant]
     Active Substance: ADALIMUMAB

REACTIONS (5)
  - Dermatitis [Unknown]
  - Rash [Unknown]
  - Discomfort [Unknown]
  - Sleep disorder due to a general medical condition [Unknown]
  - Product use in unapproved indication [Unknown]

NARRATIVE: CASE EVENT DATE: 20250901
